FAERS Safety Report 24811337 (Version 1)
Quarter: 2025Q1

REPORT INFORMATION
  Report Type: Spontaneous
  Country: US (occurrence: None)
  Receive Date: 20250106
  Receipt Date: 20250106
  Transmission Date: 20250408
  Serious: Yes (Disabling)
  Sender: FDA-CTU
  Company Number: None

PATIENT
  Age: 38 Year
  Sex: Male
  Weight: 96.8 kg

DRUGS (1)
  1. ZOLOFT [Suspect]
     Active Substance: SERTRALINE HYDROCHLORIDE

REACTIONS (22)
  - Sexual dysfunction [None]
  - Genital hypoaesthesia [None]
  - Withdrawal syndrome [None]
  - Ejaculation failure [None]
  - Mental impairment [None]
  - Apathy [None]
  - Anhedonia [None]
  - Decreased appetite [None]
  - Refusal of treatment by patient [None]
  - Loss of libido [None]
  - Hypoaesthesia oral [None]
  - Therapy cessation [None]
  - Visual impairment [None]
  - Impaired driving ability [None]
  - Malaise [None]
  - Gait disturbance [None]
  - Urinary tract disorder [None]
  - Sensory disturbance [None]
  - Testicular pain [None]
  - Suicidal ideation [None]
  - Noninfective encephalitis [None]
  - Autoimmune disorder [None]

NARRATIVE: CASE EVENT DATE: 20230604
